FAERS Safety Report 6457520-8 (Version None)
Quarter: 2009Q4

REPORT INFORMATION
  Report Type: 
  Country: None (occurrence: None)
  Receive Date: 20091125
  Receipt Date: 20091112
  Transmission Date: 20100525
  Serious: Yes (Hospitalization)
  Sender: FDA-Public Use
  Company Number: PHHY2009CA49869

PATIENT
  Sex: Female

DRUGS (2)
  1. DIOVAN HCT [Suspect]
     Dosage: 1 DF, QD
     Route: 048
  2. DIOVAN HCT [Suspect]
     Dosage: AS NEEDED BASIS

REACTIONS (6)
  - BLOOD PRESSURE FLUCTUATION [None]
  - DIZZINESS [None]
  - FALL [None]
  - JOINT DISLOCATION [None]
  - LOWER LIMB FRACTURE [None]
  - SURGERY [None]
